FAERS Safety Report 14627916 (Version 3)
Quarter: 2018Q2

REPORT INFORMATION
  Report Type: Spontaneous
  Country: US (occurrence: US)
  Receive Date: 20180312
  Receipt Date: 20180419
  Transmission Date: 20180711
  Serious: Yes (Other)
  Sender: FDA-Public Use
  Company Number: US-INDIVIOR LIMITED-INDV-109527-2018

PATIENT
  Age: 43 Year
  Sex: Female

DRUGS (8)
  1. SUBOXONE [Suspect]
     Active Substance: BUPRENORPHINE HYDROCHLORIDE\NALOXONE HYDROCHLORIDE
     Dosage: ONE FULL FILM
     Route: 060
     Dates: start: 20180309
  2. SUBOXONE [Suspect]
     Active Substance: BUPRENORPHINE HYDROCHLORIDE\NALOXONE HYDROCHLORIDE
     Dosage: ONE HALF OF A FILM
     Route: 060
     Dates: start: 20180310
  3. SUBOXONE [Suspect]
     Active Substance: BUPRENORPHINE HYDROCHLORIDE\NALOXONE HYDROCHLORIDE
     Dosage: HALF OF A FILM
     Route: 060
     Dates: start: 20180312
  4. SUBOXONE [Suspect]
     Active Substance: BUPRENORPHINE HYDROCHLORIDE\NALOXONE HYDROCHLORIDE
     Dosage: HALF OF 8MG FILM, THREE TIMES A DAY
     Route: 060
  5. SUBOXONE [Suspect]
     Active Substance: BUPRENORPHINE HYDROCHLORIDE\NALOXONE HYDROCHLORIDE
     Dosage: HALF A FILM, UNK
     Route: 060
  6. SUBOXONE [Suspect]
     Active Substance: BUPRENORPHINE HYDROCHLORIDE\NALOXONE HYDROCHLORIDE
     Dosage: UNK
     Route: 060
  7. SUBOXONE [Suspect]
     Active Substance: BUPRENORPHINE HYDROCHLORIDE\NALOXONE HYDROCHLORIDE
     Indication: DRUG DEPENDENCE
     Dosage: THREE 8MG FILMS, UNK
     Route: 060
  8. SUBOXONE [Suspect]
     Active Substance: BUPRENORPHINE HYDROCHLORIDE\NALOXONE HYDROCHLORIDE
     Dosage: UNK
     Route: 060

REACTIONS (22)
  - Scar [Unknown]
  - Headache [Unknown]
  - Drug withdrawal syndrome [Unknown]
  - Scar pain [Unknown]
  - Renal pain [Unknown]
  - Dysgeusia [Unknown]
  - Weight decreased [Unknown]
  - Crying [Unknown]
  - Product use issue [Unknown]
  - Ill-defined disorder [Unknown]
  - Hypothyroidism [Unknown]
  - Drug ineffective [Unknown]
  - Wrong technique in product usage process [Unknown]
  - Genital labial operation [Recovered/Resolved]
  - Nausea [Unknown]
  - Malaise [Unknown]
  - Intentional underdose [Recovered/Resolved]
  - Gait inability [Unknown]
  - Rhinorrhoea [Unknown]
  - Panic reaction [Unknown]
  - Feeling abnormal [Unknown]
  - Cystitis [Unknown]

NARRATIVE: CASE EVENT DATE: 201309
